FAERS Safety Report 4976660-3 (Version None)
Quarter: 2006Q2

REPORT INFORMATION
  Report Type: 
  Country: None (occurrence: None)
  Receive Date: 20060419
  Receipt Date: 20060202
  Transmission Date: 20061013
  Serious: Yes (Hospitalization, Disabling, Other)
  Sender: FDA-Public Use
  Company Number: US-MERCK-0602USA01622

PATIENT
  Age: 43 Year
  Sex: Female
  Weight: 82 kg

DRUGS (2)
  1. VIOXX [Suspect]
     Indication: MUSCLE SPASMS
     Route: 048
     Dates: start: 20000505, end: 20000611
  2. VIOXX [Suspect]
     Indication: PAIN
     Route: 048
     Dates: start: 20000505, end: 20000611

REACTIONS (14)
  - ABDOMINAL PAIN [None]
  - ARTHRALGIA [None]
  - DEHYDRATION [None]
  - DEPRESSION [None]
  - DIARRHOEA [None]
  - GALLBLADDER DISORDER [None]
  - HEPATIC FAILURE [None]
  - HYPOKALAEMIA [None]
  - HYPOTENSION [None]
  - LOSS OF CONSCIOUSNESS [None]
  - MOBILITY DECREASED [None]
  - NAUSEA [None]
  - PLASMAPHERESIS [None]
  - RENAL FAILURE [None]
